FAERS Safety Report 16568286 (Version 2)
Quarter: 2019Q3

REPORT INFORMATION
  Report Type: Spontaneous
  Country: GB (occurrence: GB)
  Receive Date: 20190712
  Receipt Date: 20190721
  Transmission Date: 20191004
  Serious: Yes (Death, Hospitalization, Other)
  Sender: FDA-Public Use
  Company Number: PHHY2019GB161684

PATIENT
  Sex: Male

DRUGS (1)
  1. CO-AMOXICLAV [Suspect]
     Active Substance: AMOXICILLIN\CLAVULANATE POTASSIUM
     Indication: LOWER RESPIRATORY TRACT INFECTION
     Dosage: 500 MG, UNK
     Route: 048
     Dates: start: 20190129, end: 20190201

REACTIONS (7)
  - Jaundice [Unknown]
  - Drug-induced liver injury [Unknown]
  - Liver function test decreased [Unknown]
  - Lung infection [Fatal]
  - Cholestasis [Fatal]
  - Hepatic failure [Fatal]
  - Interstitial lung disease [Fatal]
